FAERS Safety Report 13214417 (Version 1)
Quarter: 2017Q1

REPORT INFORMATION
  Report Type: Spontaneous
  Country: GB (occurrence: GB)
  Receive Date: 20170210
  Receipt Date: 20170210
  Transmission Date: 20170428
  Serious: Yes (Disabling)
  Sender: FDA-Public Use
  Company Number: GB-JNJFOC-20170205925

PATIENT
  Age: 13 Year
  Sex: Female
  Weight: 34 kg

DRUGS (22)
  1. CALCIUM CARBONATE. [Concomitant]
     Active Substance: CALCIUM CARBONATE
     Dosage: 10 AM
     Route: 065
     Dates: start: 20160907
  2. FOLIC ACID. [Concomitant]
     Active Substance: FOLIC ACID
     Dosage: TO TAKE ON MONDAY, TUESDAY, WEDNESDAY AND THURSDAY
     Route: 065
     Dates: start: 20161230
  3. AZATHIOPRINE. [Concomitant]
     Active Substance: AZATHIOPRINE
     Dosage: 75MG/100MG ON ALTERNATE DAYS
     Route: 065
     Dates: start: 20150803
  4. COLECALCIFEROL [Concomitant]
     Active Substance: CHOLECALCIFEROL
     Dosage: 8 AM
     Route: 065
     Dates: start: 20160907
  5. COLESTYRAMINE [Concomitant]
     Active Substance: CHOLESTYRAMINE
     Dosage: AT NIGHT
     Route: 065
     Dates: start: 20161230
  6. NASEPTIN [Concomitant]
     Active Substance: CHLORHEXIDINE HYDROCHLORIDE\NEOMYCIN SULFATE
     Dosage: 9AM AND 9PM
     Route: 065
     Dates: start: 20160907
  7. METHOTREXATE. [Concomitant]
     Active Substance: METHOTREXATE
     Dosage: 8 AM ON SATURDAY
     Route: 065
     Dates: start: 20161230
  8. LACRI-LUBE [Concomitant]
     Dosage: 8 AM
     Route: 065
     Dates: start: 20160907
  9. LANSOPRAZOLE. [Concomitant]
     Active Substance: LANSOPRAZOLE
     Dosage: 7 AM
     Route: 065
     Dates: start: 20151102
  10. RANITIDINE. [Concomitant]
     Active Substance: RANITIDINE
     Dosage: AT 7AM AND 7PM
     Route: 065
     Dates: start: 20160907
  11. SYTRON [Concomitant]
     Route: 065
     Dates: start: 20160324
  12. BENZYDAMINE HYDROCHLORIDE [Concomitant]
     Active Substance: BENZYDAMINE HYDROCHLORIDE
     Dosage: PUFF AT 8AM AND 8 PM
     Route: 065
     Dates: start: 20161024
  13. URSODEOXYCHOLIC ACID [Concomitant]
     Active Substance: URSODIOL
     Dosage: AT 8AM AND 8 PM
     Route: 065
     Dates: start: 20151021
  14. INFLIXIMAB, RECOMBINANT [Suspect]
     Active Substance: INFLIXIMAB
     Indication: PRODUCT USED FOR UNKNOWN INDICATION
     Route: 042
     Dates: start: 20170106
  15. NAPROXEN. [Concomitant]
     Active Substance: NAPROXEN
     Route: 065
     Dates: start: 20160629
  16. OILATUM [Concomitant]
     Dosage: AS NECESSARY FOR WASHING HANDS
     Route: 065
     Dates: start: 20150803
  17. PREDNISOLONE. [Concomitant]
     Active Substance: PREDNISOLONE
     Route: 065
     Dates: start: 20150803
  18. COTRIMOXAZOLE [Concomitant]
     Active Substance: SULFAMETHOXAZOLE\TRIMETHOPRIM
     Dosage: MONDAY/WEDNESDAY/FRIDAY AT 7AM AND 7PM
     Route: 065
     Dates: start: 20160907
  19. CREON [Concomitant]
     Active Substance: PANCRELIPASE AMYLASE\PANCRELIPASE LIPASE\PANCRELIPASE PROTEASE
     Dosage: EIGHT TIMES A DAY WITH FEEDS
     Route: 065
     Dates: start: 20160907
  20. MESALAZINE [Concomitant]
     Active Substance: MESALAMINE
     Route: 065
     Dates: start: 20160531
  21. MOVICOL [Concomitant]
     Active Substance: POLYETHYLENE GLYCOL 3350\POTASSIUM CHLORIDE\SODIUM BICARBONATE\SODIUM CHLORIDE
     Route: 065
     Dates: start: 20150803
  22. PARACETAMOLS [Concomitant]
     Dosage: EVERY 6 HOURS
     Route: 065
     Dates: start: 20161024

REACTIONS (2)
  - Anaphylactic reaction [Unknown]
  - Drug hypersensitivity [Unknown]

NARRATIVE: CASE EVENT DATE: 20170106
